FAERS Safety Report 8490933-1 (Version None)
Quarter: 2012Q2

REPORT INFORMATION
  Report Type: 
  Country: None (occurrence: None)
  Receive Date: 20120629
  Receipt Date: 20120629
  Transmission Date: 20120825
  Serious: Yes (Other)
  Sender: FDA-Public Use
  Company Number: None

PATIENT
  Sex: Female

DRUGS (3)
  1. VIIBRYD [Suspect]
     Indication: DEPRESSION
     Dosage: 40 MG ONCE A DAY PO
     Route: 048
     Dates: start: 20120605, end: 20120628
  2. VIIBRYD [Suspect]
     Indication: POST-TRAUMATIC STRESS DISORDER
     Dosage: 40 MG ONCE A DAY PO
     Route: 048
     Dates: start: 20120605, end: 20120628
  3. VIIBRYD [Suspect]
     Indication: ANXIETY
     Dosage: 40 MG ONCE A DAY PO
     Route: 048
     Dates: start: 20120605, end: 20120628

REACTIONS (7)
  - FEEDING DISORDER [None]
  - MIDDLE INSOMNIA [None]
  - TREMOR [None]
  - PARANOIA [None]
  - DYSGRAPHIA [None]
  - PARAESTHESIA [None]
  - DYSKINESIA [None]
